FAERS Safety Report 8874500 (Version 2)
Quarter: 2013Q1

REPORT INFORMATION
  Report Type: Spontaneous
  Country: US (occurrence: US)
  Receive Date: 20121031
  Receipt Date: 20130121
  Transmission Date: 20140127
  Serious: No
  Sender: FDA-Public Use
  Company Number: US-009507513-1210USA007795

PATIENT
  Sex: Female

DRUGS (1)
  1. IMPLANON [Suspect]
     Indication: CONTRACEPTION
     Dosage: UNK
     Route: 059
     Dates: start: 200908

REACTIONS (2)
  - Incorrect drug administration duration [Unknown]
  - No adverse event [Unknown]
